FAERS Safety Report 5373803-7 (Version None)
Quarter: 2007Q2

REPORT INFORMATION
  Report Type: 
  Country: None (occurrence: None)
  Receive Date: 20070628
  Receipt Date: 20070621
  Transmission Date: 20071010
  Serious: Yes (Other)
  Sender: FDA-Public Use
  Company Number: HU-PFIZER INC-2007038699

PATIENT
  Sex: Male
  Weight: 70 kg

DRUGS (1)
  1. SALAZOPYRIN [Suspect]
     Indication: COLITIS ULCERATIVE
     Route: 048
     Dates: start: 20010101, end: 20070301

REACTIONS (4)
  - COLITIS ULCERATIVE [None]
  - EYE PAIN [None]
  - LACRIMATION INCREASED [None]
  - RASH [None]
